FAERS Safety Report 24340008 (Version 1)
Quarter: 2024Q3

REPORT INFORMATION
  Report Type: Spontaneous
  Country: JP (occurrence: JP)
  Receive Date: 20240919
  Receipt Date: 20240919
  Transmission Date: 20241017
  Serious: Yes (Death, Hospitalization, Other)
  Sender: ROCHE
  Company Number: JP-CHUGAI-2024032272AA

PATIENT
  Age: 68 Year
  Sex: Male
  Weight: 48.7 kg

DRUGS (12)
  1. TARCEVA [Suspect]
     Active Substance: ERLOTINIB HYDROCHLORIDE
     Indication: Non-small cell lung cancer stage IV
     Route: 050
     Dates: start: 20230117, end: 20230620
  2. CYRAMZA [Suspect]
     Active Substance: RAMUCIRUMAB
     Indication: Non-small cell lung cancer stage IV
     Route: 042
     Dates: start: 20230117, end: 20230620
  3. IOMERON [Suspect]
     Active Substance: IOMEPROL
     Indication: Computerised tomogram
     Dosage: 80 MILLILITER, SINGLE
     Route: 050
     Dates: start: 20230627
  4. CALCIUM CARBONATE\CHOLECALCIFEROL\MAGNESIUM CARBONATE [Concomitant]
     Active Substance: CALCIUM CARBONATE\CHOLECALCIFEROL\MAGNESIUM CARBONATE
     Dosage: UNK
     Route: 050
     Dates: start: 20230131, end: 20230702
  5. DENOSUMAB [Concomitant]
     Active Substance: DENOSUMAB
     Dosage: UNK
     Route: 050
     Dates: start: 20230118, end: 20230523
  6. SITAGLIPTIN [Concomitant]
     Active Substance: SITAGLIPTIN
     Dosage: UNK
     Route: 050
     Dates: start: 20220930, end: 20230702
  7. AMARYL [Concomitant]
     Active Substance: GLIMEPIRIDE
     Dosage: UNK
     Route: 050
     Dates: start: 20220930, end: 20231229
  8. JARDIANCE [Concomitant]
     Active Substance: EMPAGLIFLOZIN
     Dosage: UNK
     Route: 050
     Dates: start: 20220930, end: 20230702
  9. TADALAFIL [Concomitant]
     Active Substance: TADALAFIL
     Dosage: UNK
     Route: 050
     Dates: start: 20221001, end: 20230702
  10. HARNAL [Concomitant]
     Active Substance: TAMSULOSIN HYDROCHLORIDE
     Dosage: UNK
     Route: 050
     Dates: start: 20221001, end: 20230702
  11. MITIGLINIDE [Concomitant]
     Active Substance: MITIGLINIDE
     Dosage: UNK
     Route: 050
     Dates: start: 20221219, end: 20230702
  12. VOGLIBOSE [Concomitant]
     Active Substance: VOGLIBOSE
     Dosage: UNK
     Route: 050
     Dates: start: 20221220, end: 20230702

REACTIONS (12)
  - Acute coronary syndrome [Fatal]
  - Hypotension [Fatal]
  - Anaphylactic shock [Recovered/Resolved]
  - Pulseless electrical activity [Recovering/Resolving]
  - Ischaemic hepatitis [Unknown]
  - Epilepsy [Unknown]
  - Acute kidney injury [Unknown]
  - Physical deconditioning [Unknown]
  - Chest pain [Unknown]
  - Constipation [Unknown]
  - Decreased appetite [Unknown]
  - Taste disorder [Unknown]

NARRATIVE: CASE EVENT DATE: 20230627
